FAERS Safety Report 18090415 (Version 1)
Quarter: 2020Q3

REPORT INFORMATION
  Report Type: Spontaneous
  Country: US (occurrence: US)
  Receive Date: 20200730
  Receipt Date: 20200730
  Transmission Date: 20201103
  Serious: Yes (Other)
  Sender: FDA-Public Use
  Company Number: US-ALVOGEN-2020-ALVOGEN-113727

PATIENT
  Age: 49 Year
  Sex: Male

DRUGS (9)
  1. HYDROXYUREA. [Suspect]
     Active Substance: HYDROXYUREA
     Indication: CHLOROMA
  2. VINCRISTINE [Suspect]
     Active Substance: VINCRISTINE
     Indication: PRODUCT USED FOR UNKNOWN INDICATION
  3. DOXORUBICIN [Suspect]
     Active Substance: DOXORUBICIN
     Indication: HODGKIN^S DISEASE
  4. IMATINIB. [Suspect]
     Active Substance: IMATINIB MESYLATE
     Indication: CHLOROMA
  5. VINBLASTINE [Suspect]
     Active Substance: VINBLASTINE
     Indication: HODGKIN^S DISEASE
  6. DACARBAZINE. [Suspect]
     Active Substance: DACARBAZINE
     Indication: HODGKIN^S DISEASE
  7. BLEOMYCIN [Suspect]
     Active Substance: BLEOMYCIN SULFATE
     Indication: HODGKIN^S DISEASE
  8. BENDAMUSTINE [Suspect]
     Active Substance: BENDAMUSTINE
     Indication: HODGKIN^S DISEASE
  9. BRENTUXIMAB VEDOTIN [Suspect]
     Active Substance: BRENTUXIMAB VEDOTIN
     Indication: HODGKIN^S DISEASE

REACTIONS (3)
  - Cardiac failure [Recovering/Resolving]
  - Endocarditis noninfective [Unknown]
  - Therapy partial responder [Unknown]
